FAERS Safety Report 8314723-5 (Version None)
Quarter: 2012Q2

REPORT INFORMATION
  Report Type: 
  Country: None (occurrence: None)
  Receive Date: 20120426
  Receipt Date: 20120419
  Transmission Date: 20120825
  Serious: Yes (Hospitalization, Other)
  Sender: FDA-Public Use
  Company Number: US-BAYER-2011-123778

PATIENT
  Age: 36 Year
  Sex: Female
  Weight: 143.76 kg

DRUGS (8)
  1. DROSPIRENONE AND ETHINYL ESTRADIOL [Suspect]
     Indication: CONTRACEPTION
     Dosage: UNK
     Dates: start: 20081001, end: 20090201
  2. DROSPIRENONE AND ETHINYL ESTRADIOL [Suspect]
     Dosage: UNK
     Dates: start: 20090501, end: 20091031
  3. CLOZARIL [Concomitant]
     Indication: SCHIZOPHRENIA
     Dosage: DAILY DOSE 100 MG
     Route: 048
  4. PHENAZOPYRIDINE HCL TAB [Concomitant]
     Indication: PAIN
  5. POTASSIUM CHLORIDE [Concomitant]
     Dosage: UNK
     Dates: start: 20050101, end: 20100101
  6. FUROSEMIDE [Concomitant]
     Dosage: 20 MG, UNK
     Dates: start: 20060101, end: 20110101
  7. LISINOPRIL [Concomitant]
     Indication: HYPERTENSION
     Dosage: DAILY DOSE 10 MG
     Route: 048
  8. MACROBID [Concomitant]
     Indication: URINARY TRACT INFECTION
     Dosage: 100 MG, BID
     Route: 048
     Dates: start: 20091030

REACTIONS (9)
  - PAIN [None]
  - SCHIZOPHRENIA [None]
  - EMOTIONAL DISTRESS [None]
  - DYSPNOEA [None]
  - PULMONARY EMBOLISM [None]
  - PALPITATIONS [None]
  - GENERAL PHYSICAL HEALTH DETERIORATION [None]
  - BIPOLAR DISORDER [None]
  - ANXIETY [None]
